FAERS Safety Report 6666868-3 (Version None)
Quarter: 2010Q2

REPORT INFORMATION
  Report Type: 
  Country: None (occurrence: None)
  Receive Date: 20100405
  Receipt Date: 20100324
  Transmission Date: 20101027
  Serious: Yes (Other)
  Sender: FDA-Public Use
  Company Number: JP-ASTRAZENECA-2010SE14504

PATIENT
  Age: 90 Year
  Sex: Male

DRUGS (2)
  1. MEROPEN [Suspect]
     Indication: PNEUMONIA ASPIRATION
     Route: 042
     Dates: start: 20100301, end: 20100301
  2. FAMOTIDINE [Concomitant]

REACTIONS (1)
  - EPILEPSY [None]
